FAERS Safety Report 9690046 (Version 1)
Quarter: 2013Q4

REPORT INFORMATION
  Report Type: Spontaneous
  Country: US (occurrence: US)
  Receive Date: 20131115
  Receipt Date: 20131115
  Transmission Date: 20140711
  Serious: Yes (Hospitalization)
  Sender: FDA-Public Use
  Company Number: US-SA-2013SA117594

PATIENT
  Age: 54 Year
  Sex: Female

DRUGS (4)
  1. LANTUS SOLOSTAR [Suspect]
     Indication: TYPE 2 DIABETES MELLITUS
     Dosage: PRODUCT START DATE - OVER ONE MONTH AGO?DOSAGE- 15-20 UNITS DAILY
     Route: 058
  2. LOVENOX [Suspect]
     Indication: PULMONARY EMBOLISM
     Route: 065
  3. COUMADIN [Suspect]
     Indication: PULMONARY EMBOLISM
     Route: 065
  4. SOLOSTAR [Concomitant]
     Indication: TYPE 2 DIABETES MELLITUS

REACTIONS (3)
  - Venous insufficiency [Unknown]
  - Local swelling [Recovering/Resolving]
  - International normalised ratio abnormal [Unknown]
